FAERS Safety Report 13857790 (Version 2)
Quarter: 2017Q3

REPORT INFORMATION
  Report Type: Spontaneous
  Country: US (occurrence: US)
  Receive Date: 20170811
  Receipt Date: 20170818
  Transmission Date: 20171127
  Serious: Yes (Death, Other)
  Sender: FDA-Public Use
  Company Number: US-ASTELLAS-2017US028653

PATIENT
  Sex: Male

DRUGS (2)
  1. XTANDI [Suspect]
     Active Substance: ENZALUTAMIDE
     Indication: PROSTATE CANCER
     Route: 048
     Dates: start: 20170630
  2. XTANDI [Suspect]
     Active Substance: ENZALUTAMIDE
     Route: 048

REACTIONS (12)
  - Malignant neoplasm progression [Fatal]
  - Vision blurred [Unknown]
  - Musculoskeletal pain [Unknown]
  - Pain in extremity [Unknown]
  - Cardiac failure congestive [Fatal]
  - Nausea [Unknown]
  - Cardio-respiratory arrest [Fatal]
  - Paraesthesia [Unknown]
  - Hypoaesthesia [Unknown]
  - Back pain [Unknown]
  - Fatigue [Unknown]
  - Underdose [Unknown]
